FAERS Safety Report 16628524 (Version 14)
Quarter: 2021Q2

REPORT INFORMATION
  Report Type: Spontaneous
  Country: CA (occurrence: CA)
  Receive Date: 20190725
  Receipt Date: 20210412
  Transmission Date: 20210716
  Serious: Yes (Other)
  Sender: FDA-Public Use
  Company Number: CA-CELLTRION INC.-2017CA012991

PATIENT

DRUGS (38)
  1. INFLECTRA [Suspect]
     Active Substance: INFLIXIMAB-DYYB
     Dosage: 300 MG, EVERY 8 WEEKS
     Route: 042
     Dates: start: 20190404, end: 20190404
  2. INFLECTRA [Suspect]
     Active Substance: INFLIXIMAB-DYYB
     Dosage: 327 MG, EVERY 6 WEEKS
     Route: 042
     Dates: start: 20200320, end: 20200320
  3. LEUCOVORIN [FOLINIC ACID] [Concomitant]
     Active Substance: LEUCOVORIN
     Dosage: 5 MG, CYCLIC (2 DAYS FOLLOWING METHOTREXATE)
     Route: 065
     Dates: start: 2012
  4. DICLOFENAC SODIUM ER [Concomitant]
     Active Substance: DICLOFENAC SODIUM
     Dosage: 100 MG, 1X/DAY
     Route: 065
     Dates: start: 2007
  5. INFLECTRA [Suspect]
     Active Substance: INFLIXIMAB-DYYB
     Dosage: 300 MG, AT 0, 2, 6 WEEKS, THEN EVERY 8 WEEKS
     Route: 042
     Dates: start: 20171220, end: 20171220
  6. INFLECTRA [Suspect]
     Active Substance: INFLIXIMAB-DYYB
     Dosage: 327 MG, EVERY 6 WEEKS
     Route: 042
     Dates: start: 20200206, end: 20200206
  7. INFLECTRA [Suspect]
     Active Substance: INFLIXIMAB-DYYB
     Dosage: 400 MG, EVERY 6 WEEKS
     Route: 042
     Dates: start: 20210303
  8. DICLOFENAC [Concomitant]
     Active Substance: DICLOFENAC
     Dosage: 100 MG, ONCE DAILY
     Route: 065
     Dates: start: 2007
  9. LOSEC [Concomitant]
     Active Substance: OMEPRAZOLE
     Dosage: 20 MG, 1X/DAY
     Route: 065
  10. INFLECTRA [Suspect]
     Active Substance: INFLIXIMAB-DYYB
     Dosage: 300 MG, AT 0, 2, 6 WEEKS, THEN EVERY 8 WEEKS
     Route: 042
     Dates: start: 20171018, end: 20171018
  11. INFLECTRA [Suspect]
     Active Substance: INFLIXIMAB-DYYB
     Dosage: 327 MG, EVERY 6 WEEKS
     Route: 042
     Dates: start: 20200612, end: 20200612
  12. INFLECTRA [Suspect]
     Active Substance: INFLIXIMAB-DYYB
     Dosage: 400 MG, EVERY 6 WEEKS
     Route: 042
     Dates: start: 20201026
  13. INFLECTRA [Suspect]
     Active Substance: INFLIXIMAB-DYYB
     Dosage: 400 MG, EVERY 6 WEEKS
     Route: 042
     Dates: start: 20210303
  14. INFLECTRA [Suspect]
     Active Substance: INFLIXIMAB-DYYB
     Dosage: 300 MG, AT 0, 2, 6 WEEKS, THEN EVERY 8 WEEKS
     Route: 042
     Dates: start: 20180917, end: 20180917
  15. INFLECTRA [Suspect]
     Active Substance: INFLIXIMAB-DYYB
     Dosage: 300 MG, AT 0, 2, 6 WEEKS, THEN EVERY 8 WEEKS
     Route: 042
     Dates: start: 20181112, end: 20181112
  16. INFLECTRA [Suspect]
     Active Substance: INFLIXIMAB-DYYB
     Dosage: 300 MG, AT 0, 2, 6 WEEKS, THEN EVERY 8 WEEKS
     Route: 042
     Dates: start: 20190117, end: 20190117
  17. INFLECTRA [Suspect]
     Active Substance: INFLIXIMAB-DYYB
     Dosage: 400 MG, EVERY 6 WEEKS
     Route: 042
     Dates: start: 20200914
  18. METHOTREXATE SODIUM. [Suspect]
     Active Substance: METHOTREXATE SODIUM
     Indication: RHEUMATOID ARTHRITIS
     Dosage: 2.5 MG, WEEKLY
     Route: 058
     Dates: start: 2012
  19. LEFLUNOMIDE. [Suspect]
     Active Substance: LEFLUNOMIDE
     Dosage: 10 MG
     Route: 065
  20. INFLECTRA [Suspect]
     Active Substance: INFLIXIMAB-DYYB
     Dosage: 300 MG, AT 0, 2, 6 WEEKS, THEN EVERY 8 WEEKS
     Route: 042
     Dates: start: 20180731, end: 20180731
  21. INFLECTRA [Suspect]
     Active Substance: INFLIXIMAB-DYYB
     Dosage: 327 MG, EVERY 6 WEEKS
     Route: 042
     Dates: start: 20200429, end: 20200429
  22. LEFLUNOMIDE. [Suspect]
     Active Substance: LEFLUNOMIDE
     Dosage: 20 MG, UNK
  23. INFLECTRA [Suspect]
     Active Substance: INFLIXIMAB-DYYB
     Indication: RHEUMATOID ARTHRITIS
     Dosage: 300 MG, AT 0, 2, 6 WEEKS, THEN EVERY 8 WEEKS
     Route: 042
     Dates: start: 20170907, end: 20170907
  24. INFLECTRA [Suspect]
     Active Substance: INFLIXIMAB-DYYB
     Dosage: 300 MG, EVERY 8 WEEKS
     Route: 042
     Dates: start: 20190430, end: 20190430
  25. INFLECTRA [Suspect]
     Active Substance: INFLIXIMAB-DYYB
     Dosage: 327 MG, EVERY 6 WEEKS
     Route: 042
     Dates: start: 20191114, end: 20191114
  26. INFLECTRA [Suspect]
     Active Substance: INFLIXIMAB-DYYB
     Dosage: 327 MG, EVERY 6 WEEKS
     Route: 042
     Dates: start: 20191224, end: 20191224
  27. LYRICA [Suspect]
     Active Substance: PREGABALIN
     Dosage: 150 MG, 1X/DAY
     Route: 065
     Dates: start: 2009
  28. CIPRALEX [Concomitant]
     Active Substance: ESCITALOPRAM OXALATE
     Dosage: 40 MG, 1X/DAY
     Route: 065
  29. PERCOCET [OXYCODONE HYDROCHLORIDE;OXYCODONE TEREPHTHALATE;PARACETAMOL] [Concomitant]
     Active Substance: ACETAMINOPHEN\OXYCODONE HYDROCHLORIDE\OXYCODONE TEREPHTHALATE
     Dosage: 525 MG, AS NEEDED (EVERY 6 HOURS)
     Route: 065
  30. INFLECTRA [Suspect]
     Active Substance: INFLIXIMAB-DYYB
     Dosage: 327 MG, EVERY 6 WEEKS
     Route: 042
     Dates: start: 20190711, end: 20190711
  31. INFLECTRA [Suspect]
     Active Substance: INFLIXIMAB-DYYB
     Dosage: 400 MG, EVERY 6 WEEKS
     Route: 042
     Dates: start: 20210330
  32. LEFLUNOMIDE. [Suspect]
     Active Substance: LEFLUNOMIDE
     Dosage: 10 MG, DAILY
     Route: 065
  33. INFLECTRA [Suspect]
     Active Substance: INFLIXIMAB-DYYB
     Dosage: 300 MG, AT 0, 2, 6 WEEKS, THEN EVERY 8 WEEKS
     Route: 042
     Dates: start: 20180214, end: 20180214
  34. INFLECTRA [Suspect]
     Active Substance: INFLIXIMAB-DYYB
     Dosage: 300 MG, EVERY 8 WEEKS
     Route: 042
     Dates: start: 20190530, end: 20190530
  35. INFLECTRA [Suspect]
     Active Substance: INFLIXIMAB-DYYB
     Dosage: 327 MG, EVERY 6 WEEKS
     Route: 042
     Dates: start: 20191002, end: 20191002
  36. INFLECTRA [Suspect]
     Active Substance: INFLIXIMAB-DYYB
     Dosage: 400 MG, EVERY 6 WEEKS
     Route: 042
     Dates: start: 20200724, end: 20200724
  37. INFLECTRA [Suspect]
     Active Substance: INFLIXIMAB-DYYB
     Dosage: 400 MG, EVERY 6 WEEKS
     Route: 042
     Dates: start: 20201207
  38. LEUCOVORIN [CALCIUM FOLINATE] [Concomitant]
     Active Substance: LEUCOVORIN
     Dosage: 5 MG (2 DAYS FOLLOWING THE METHOTREXATE)
     Route: 065
     Dates: start: 2012

REACTIONS (30)
  - Drug ineffective [Unknown]
  - Inappropriate schedule of product administration [Unknown]
  - Peripheral swelling [Recovering/Resolving]
  - Nasopharyngitis [Recovered/Resolved]
  - Blood pressure increased [Not Recovered/Not Resolved]
  - Pain [Not Recovered/Not Resolved]
  - Influenza [Recovered/Resolved]
  - Tenderness [Unknown]
  - Body temperature decreased [Unknown]
  - Therapeutic response shortened [Unknown]
  - Stress [Unknown]
  - Back pain [Not Recovered/Not Resolved]
  - Pain in extremity [Unknown]
  - Wound [Unknown]
  - Erythema [Unknown]
  - Contusion [Unknown]
  - Lower respiratory tract infection [Recovered/Resolved]
  - Off label use [Unknown]
  - Off label use [Unknown]
  - Intentional product use issue [Unknown]
  - Illness [Unknown]
  - Infusion site extravasation [Unknown]
  - Arthralgia [Unknown]
  - Road traffic accident [Unknown]
  - Pneumonia [Recovered/Resolved]
  - Renal disorder [Unknown]
  - Mobility decreased [Unknown]
  - Cystitis [Recovered/Resolved]
  - Injection site bruising [Unknown]
  - Discharge [Unknown]

NARRATIVE: CASE EVENT DATE: 20180214
